FAERS Safety Report 6428238-2 (Version None)
Quarter: 2009Q4

REPORT INFORMATION
  Report Type: 
  Country: None (occurrence: None)
  Receive Date: 20091104
  Receipt Date: 20091104
  Transmission Date: 20100525
  Serious: Yes (Hospitalization)
  Sender: FDA-Public Use
  Company Number: None

PATIENT
  Age: 69 Year

DRUGS (1)
  1. WARFARIN SODIUM [Suspect]
     Indication: DEEP VEIN THROMBOSIS
     Dosage: 5 MG EVERY DAY PO
     Route: 048
     Dates: start: 20050825, end: 20090302

REACTIONS (5)
  - GASTRIC HAEMORRHAGE [None]
  - HAEMATURIA [None]
  - HAEMORRHAGE [None]
  - ILEITIS [None]
  - SMALL INTESTINAL OBSTRUCTION [None]
